FAERS Safety Report 10145659 (Version 1)
Quarter: 2014Q2

REPORT INFORMATION
  Report Type: Spontaneous
  Country: US (occurrence: US)
  Receive Date: 20140501
  Receipt Date: 20140501
  Transmission Date: 20141212
  Serious: No
  Sender: FDA-Public Use
  Company Number: US-ABBVIE-13P-163-1114890-00

PATIENT
  Age: 78 Year
  Sex: Female
  Weight: 62.65 kg

DRUGS (2)
  1. CREON [Suspect]
     Indication: PANCREATIC CARCINOMA
     Dosage: 1 CAPSULE QID
     Route: 048
     Dates: start: 201301
  2. OMEPRAZOLE [Concomitant]
     Indication: PRODUCT USED FOR UNKNOWN INDICATION

REACTIONS (2)
  - Frequent bowel movements [Not Recovered/Not Resolved]
  - Flatulence [Not Recovered/Not Resolved]
